FAERS Safety Report 8816056 (Version 2)
Quarter: 2012Q4

REPORT INFORMATION
  Report Type: 
  Country: US (occurrence: US)
  Receive Date: 20120928
  Receipt Date: 20121106
  Transmission Date: 20130627
  Serious: Yes (Other)
  Sender: FDA-Public Use
  Company Number: US-INCYTE CORPORATION-2012IN000625

PATIENT
  Age: 69 None
  Sex: Female
  Weight: 51 kg

DRUGS (8)
  1. JAKAFI [Suspect]
     Indication: MYELOFIBROSIS
     Dosage: 20 mg, bid
     Route: 048
     Dates: start: 20120202
  2. ELAVIL [Suspect]
     Indication: ANTIDEPRESSANT THERAPY
     Dosage: Not specified
     Dates: end: 2012
  3. ATENOLOL [Concomitant]
     Dosage: 25 mg bid
  4. LISINOPRIL [Concomitant]
     Dosage: 30 mg, qd
  5. PRILOSEC [Concomitant]
     Dosage: 20 mg, qd
  6. ASPIRIN [Concomitant]
     Dosage: 325 mg, qd
  7. REMERON [Concomitant]
     Dosage: 300 mg, hs
  8. CALCIUM [Concomitant]
     Dosage: UNK, qd

REACTIONS (11)
  - Pulmonary hypertension [Not Recovered/Not Resolved]
  - Muscle spasms [Not Recovered/Not Resolved]
  - Temperature intolerance [Recovered/Resolved]
  - Chills [Recovered/Resolved]
  - Musculoskeletal discomfort [Not Recovered/Not Resolved]
  - Feeling cold [Recovered/Resolved]
  - Bone pain [Recovered/Resolved]
  - Insomnia [Recovered/Resolved]
  - Depressed mood [Unknown]
  - Palpitations [Recovered/Resolved]
  - Pyrexia [Recovered/Resolved]
